FAERS Safety Report 20037423 (Version 2)
Quarter: 2022Q1

REPORT INFORMATION
  Report Type: Spontaneous
  Country: US (occurrence: US)
  Receive Date: 20211105
  Receipt Date: 20220106
  Transmission Date: 20220424
  Serious: Yes (Other)
  Sender: FDA-Public Use
  Company Number: US-PFIZER INC-202101417166

PATIENT
  Age: 58 Year
  Sex: Female
  Weight: 81.65 kg

DRUGS (2)
  1. PREMARIN [Suspect]
     Active Substance: ESTROGENS, CONJUGATED
     Indication: Hot flush
     Dosage: ITS HIGHEST DOSE WHATEVER THAT 625 OR 6 WHATEVER IT IS
     Dates: start: 20211006
  2. PREMARIN [Suspect]
     Active Substance: ESTROGENS, CONJUGATED
     Indication: Vulvovaginal dryness

REACTIONS (5)
  - Vaginal discharge [Unknown]
  - Vulvovaginal burning sensation [Unknown]
  - Vaginal haemorrhage [Unknown]
  - Fungal infection [Unknown]
  - Vulvovaginal pruritus [Unknown]
